FAERS Safety Report 4281359-5 (Version None)
Quarter: 2004Q1

REPORT INFORMATION
  Report Type: 
  Country: None (occurrence: None)
  Receive Date: 20040129
  Receipt Date: 20040120
  Transmission Date: 20041129
  Serious: Yes (Hospitalization)
  Sender: FDA-Public Use
  Company Number: US-ROCHE-356781

PATIENT
  Age: 44 Year
  Sex: Male

DRUGS (2)
  1. KLONOPIN [Suspect]
     Indication: PANIC DISORDER
     Route: 048
  2. KLONOPIN [Suspect]
     Route: 048
     Dates: start: 20040115, end: 20040115

REACTIONS (2)
  - OVERDOSE [None]
  - SUICIDE ATTEMPT [None]
